FAERS Safety Report 17874953 (Version 2)
Quarter: 2021Q2

REPORT INFORMATION
  Report Type: Spontaneous
  Country: US (occurrence: US)
  Receive Date: 20200609
  Receipt Date: 20210510
  Transmission Date: 20210717
  Serious: No
  Sender: FDA-Public Use
  Company Number: US-PFIZER INC-2020222237

PATIENT
  Sex: Male

DRUGS (2)
  1. GLIBENCLAMIDE [Interacting]
     Active Substance: GLYBURIDE
     Dosage: UNK
  2. FLUCONAZOLE. [Suspect]
     Active Substance: FLUCONAZOLE
     Dosage: UNK

REACTIONS (3)
  - Drug interaction [Unknown]
  - Burning sensation [Unknown]
  - Blister [Unknown]
